FAERS Safety Report 5752200-6 (Version None)
Quarter: 2008Q2

REPORT INFORMATION
  Report Type: 
  Country: None (occurrence: None)
  Receive Date: 20080529
  Receipt Date: 20080516
  Transmission Date: 20081010
  Serious: Yes (Hospitalization)
  Sender: FDA-Public Use
  Company Number: CO-ELI_LILLY_AND_COMPANY-CO200805003808

PATIENT
  Age: 43 Year
  Sex: Female

DRUGS (1)
  1. BYETTA [Suspect]
     Indication: OVERWEIGHT
     Dosage: 5 UG, 2/D
     Route: 058
     Dates: start: 20080501

REACTIONS (4)
  - ANOREXIA [None]
  - DIARRHOEA [None]
  - TREMOR [None]
  - VOMITING [None]
